FAERS Safety Report 20855980 (Version 1)
Quarter: 2022Q2

REPORT INFORMATION
  Report Type: Spontaneous
  Country: CN (occurrence: CN)
  Receive Date: 20220520
  Receipt Date: 20220520
  Transmission Date: 20220721
  Serious: Yes (Hospitalization, Other)
  Sender: FDA-Public Use
  Company Number: CN-BAYER-2022A071410

PATIENT
  Age: 62 Year
  Sex: Male
  Weight: 52 kg

DRUGS (3)
  1. STIVARGA [Suspect]
     Active Substance: REGORAFENIB
     Indication: Hepatic cancer stage III
     Dosage: 80 MG, QD
     Route: 048
     Dates: start: 20220409, end: 20220429
  2. TISLELIZUMAB [Suspect]
     Active Substance: TISLELIZUMAB
     Indication: Hepatic cancer
     Dosage: 200 MG, QD
     Route: 041
     Dates: start: 20220409, end: 20220409
  3. SODIUM CHLORIDE [Concomitant]
     Active Substance: SODIUM CHLORIDE
     Indication: Vehicle solution use
     Dosage: 100 MG, QD
     Route: 041
     Dates: start: 20220409, end: 20220409

REACTIONS (3)
  - Myelosuppression [Recovering/Resolving]
  - Platelet count decreased [Recovering/Resolving]
  - Off label use [None]

NARRATIVE: CASE EVENT DATE: 20220409
